FAERS Safety Report 6604314-6 (Version None)
Quarter: 2010Q1

REPORT INFORMATION
  Report Type: 
  Country: None (occurrence: None)
  Receive Date: 20100226
  Receipt Date: 20090930
  Transmission Date: 20100710
  Serious: No
  Sender: FDA-Public Use
  Company Number: A0802837A

PATIENT
  Age: 30 Year
  Sex: Male
  Weight: 72.7 kg

DRUGS (2)
  1. LAMOTRIGINE [Suspect]
     Indication: BIPOLAR DISORDER
     Dosage: 200MG TWICE PER DAY
     Route: 048
     Dates: start: 20090201, end: 20090820
  2. WELLBUTRIN XL [Concomitant]
     Dosage: 300MG UNKNOWN
     Route: 065

REACTIONS (5)
  - DRY EYE [None]
  - GENITAL ERYTHEMA [None]
  - LYMPHADENOPATHY [None]
  - RASH [None]
  - RASH GENERALISED [None]
